FAERS Safety Report 10054929 (Version 1)
Quarter: 2014Q2

REPORT INFORMATION
  Report Type: Report from Study
  Country: GR (occurrence: GR)
  Receive Date: 20140402
  Receipt Date: 20140402
  Transmission Date: 20141212
  Serious: Yes (Hospitalization)
  Sender: FDA-Public Use
  Company Number: PHHY2014GR039657

PATIENT
  Age: 43 Year
  Sex: Female

DRUGS (1)
  1. GILENYA [Suspect]
     Route: 048
     Dates: start: 20121129

REACTIONS (4)
  - Multiple sclerosis relapse [Unknown]
  - Muscular weakness [Unknown]
  - Hypoaesthesia [Unknown]
  - Dyskinesia [Unknown]
